FAERS Safety Report 25127418 (Version 1)
Quarter: 2025Q1

REPORT INFORMATION
  Report Type: Spontaneous
  Country: US (occurrence: US)
  Receive Date: 20250327
  Receipt Date: 20250327
  Transmission Date: 20250408
  Serious: Yes (Hospitalization, Other)
  Sender: AMGEN
  Company Number: US-AMGEN-USASP2025055451

PATIENT
  Age: 36 Year
  Sex: Female

DRUGS (2)
  1. PREDNISONE [Suspect]
     Active Substance: PREDNISONE
     Indication: Myocarditis
     Route: 065
  2. PREDNISONE [Suspect]
     Active Substance: PREDNISONE
     Indication: Immunosuppression

REACTIONS (6)
  - Cardiac granuloma [Unknown]
  - Eosinophilic myocarditis [Unknown]
  - Cardiac ventricular thrombosis [Unknown]
  - Acute respiratory failure [Unknown]
  - Ejection fraction decreased [Unknown]
  - General physical health deterioration [Unknown]
